FAERS Safety Report 22073861 (Version 3)
Quarter: 2023Q2

REPORT INFORMATION
  Report Type: Spontaneous
  Country: US (occurrence: US)
  Receive Date: 20230308
  Receipt Date: 20230612
  Transmission Date: 20230721
  Serious: Yes (Other)
  Sender: FDA-Public Use
  Company Number: US-JAZZ PHARMACEUTICALS-2023-US-005082

PATIENT
  Age: 32 Year
  Sex: Female

DRUGS (2)
  1. XYREM [Suspect]
     Active Substance: SODIUM OXYBATE
     Indication: Product used for unknown indication
     Dosage: UNK
  2. XYREM [Suspect]
     Active Substance: SODIUM OXYBATE
     Dosage: 4.5 GRAM AND 4 GRAM 4 HOURS APART

REACTIONS (8)
  - Depressed level of consciousness [Recovered/Resolved]
  - Muscle contractions involuntary [Recovered/Resolved]
  - Neurological symptom [Recovered/Resolved]
  - Confusional state [Unknown]
  - Chromaturia [Unknown]
  - Extra dose administered [Unknown]
  - Incorrect dose administered [Unknown]
  - Wrong product administered [Unknown]
